FAERS Safety Report 5611672-8 (Version None)
Quarter: 2008Q1

REPORT INFORMATION
  Report Type: 
  Country: None (occurrence: None)
  Receive Date: 20080201
  Receipt Date: 20071203
  Transmission Date: 20080703
  Serious: Yes (Hospitalization)
  Sender: FDA-Public Use
  Company Number: CA-AMGEN-US251817

PATIENT
  Sex: Male

DRUGS (14)
  1. CINACALCET [Suspect]
     Indication: HYPERPARATHYROIDISM SECONDARY
     Route: 048
     Dates: start: 20070530
  2. TUMS [Concomitant]
     Route: 065
  3. AMITRIPTYLINE HCL [Concomitant]
     Route: 048
     Dates: start: 20060720
  4. ASPIRIN [Concomitant]
     Route: 048
     Dates: start: 20061218
  5. ATORVASTATIN [Concomitant]
     Route: 048
     Dates: start: 20060310
  6. CALCITRIOL [Concomitant]
     Route: 048
     Dates: start: 20070713
  7. CALCIUM CARBONATE [Concomitant]
     Route: 048
     Dates: start: 20070822
  8. EPREX [Concomitant]
     Route: 042
     Dates: start: 20051201
  9. PALAFER [Concomitant]
     Route: 048
  10. NOVOLIN N [Concomitant]
     Dates: start: 20061220
  11. RAMIPRIL [Concomitant]
     Route: 048
     Dates: start: 20061220
  12. REPAGLINIDE [Concomitant]
     Dates: start: 20060310
  13. VIAGRA [Concomitant]
     Dates: start: 20061228
  14. GLUCONORM [Concomitant]
     Route: 048

REACTIONS (1)
  - UPPER GASTROINTESTINAL HAEMORRHAGE [None]
